FAERS Safety Report 11390619 (Version 1)
Quarter: 2015Q3

REPORT INFORMATION
  Report Type: Spontaneous
  Country: US (occurrence: US)
  Receive Date: 20150818
  Receipt Date: 20150818
  Transmission Date: 20151125
  Serious: No
  Sender: FDA-Public Use
  Company Number: US-ROCHE-1341751

PATIENT
  Age: 63 Year
  Sex: Female

DRUGS (8)
  1. PEGASYS [Suspect]
     Active Substance: PEGINTERFERON ALFA-2A
     Indication: CHRONIC HEPATITIS C
     Route: 058
     Dates: start: 20131004
  2. OATMEAL. [Concomitant]
     Active Substance: OATMEAL
  3. CLOROX BLEACH [Concomitant]
  4. INCIVEK [Suspect]
     Active Substance: TELAPREVIR
     Indication: CHRONIC HEPATITIS C
     Route: 065
     Dates: start: 20131004, end: 20131227
  5. COPEGUS [Suspect]
     Active Substance: RIBAVIRIN
     Indication: CHRONIC HEPATITIS C
     Dosage: DIVIDED DOSES
     Route: 048
     Dates: start: 20131004
  6. COPEGUS [Suspect]
     Active Substance: RIBAVIRIN
     Route: 048
  7. VINEGAR [Concomitant]
     Active Substance: ACETIC ACID
  8. COPEGUS [Suspect]
     Active Substance: RIBAVIRIN
     Route: 048
     Dates: start: 201402

REACTIONS (16)
  - Skin disorder [Unknown]
  - Red blood cell count decreased [Unknown]
  - Glossodynia [Unknown]
  - Rash [Recovering/Resolving]
  - Injection site reaction [Unknown]
  - Skin haemorrhage [Unknown]
  - Hypoaesthesia [Unknown]
  - Contusion [Unknown]
  - Pruritus generalised [Unknown]
  - Insomnia [Unknown]
  - White blood cell count decreased [Unknown]
  - Dysgeusia [Unknown]
  - Hyperaesthesia [Unknown]
  - Ageusia [Unknown]
  - Weight decreased [Unknown]
  - Alopecia [Unknown]

NARRATIVE: CASE EVENT DATE: 20131010
